FAERS Safety Report 26146434 (Version 1)
Quarter: 2025Q4

REPORT INFORMATION
  Report Type: Spontaneous
  Country: US (occurrence: US)
  Receive Date: 20251211
  Receipt Date: 20251211
  Transmission Date: 20260118
  Serious: No
  Sender: SANDOZ
  Company Number: US-SANDOZ-SDZ2025US092516

PATIENT

DRUGS (2)
  1. INFUVITE ADULT [Suspect]
     Active Substance: .ALPHA.-TOCOPHEROL ACETATE\ASCORBIC ACID\BIOTIN\CHOLECALCIFEROL\CYANOCOBALAMIN\DEXPANTHENOL\FOLIC AC
     Indication: Product used for unknown indication
     Dosage: UNK (STRENGTH- 200 MG + 3300 IU + 200 IU +  6 MG + 3.6 MG + 6 MG + 40 MG + 15  MG + 10 IU + 150 MCG
     Route: 065
  2. INFUVITE ADULT [Suspect]
     Active Substance: .ALPHA.-TOCOPHEROL ACETATE\ASCORBIC ACID\BIOTIN\CHOLECALCIFEROL\CYANOCOBALAMIN\DEXPANTHENOL\FOLIC AC
     Dosage: UNKUNK (STRENGTH- 200 MG + 3300 IU + 200 IU +  6 MG + 3.6 MG + 6 MG + 40 MG + 15  MG + 10 IU + 150 M
     Route: 065

REACTIONS (1)
  - Dyspnoea [Recovered/Resolved]
